FAERS Safety Report 10235309 (Version 1)
Quarter: 2014Q2

REPORT INFORMATION
  Report Type: Spontaneous
  Country: FR (occurrence: None)
  Receive Date: 20140611
  Receipt Date: 20140611
  Transmission Date: 20141212
  Serious: Yes (Other)
  Sender: FDA-Public Use
  Company Number: 2014060015

PATIENT
  Sex: Female

DRUGS (1)
  1. D-PENICILLAMINE (PENICILLAMINE) [Suspect]
     Indication: HEPATO-LENTICULAR DEGENERATION

REACTIONS (1)
  - Acquired epidermolysis bullosa [None]
